FAERS Safety Report 6478835-3 (Version None)
Quarter: 2009Q4

REPORT INFORMATION
  Report Type: 
  Country: None (occurrence: None)
  Receive Date: 20091207
  Receipt Date: 20091130
  Transmission Date: 20100525
  Serious: Yes (Death)
  Sender: FDA-Public Use
  Company Number: CA-ABBOTT-07P-028-0429896-00

PATIENT
  Sex: Male
  Weight: 59.928 kg

DRUGS (1)
  1. MAVIK [Suspect]
     Indication: HYPERTENSION
     Route: 048

REACTIONS (2)
  - CARDIAC FAILURE [None]
  - CARDIOMYOPATHY [None]
